FAERS Safety Report 5779608-7 (Version None)
Quarter: 2008Q2

REPORT INFORMATION
  Report Type: 
  Country: None (occurrence: None)
  Receive Date: 20080619
  Receipt Date: 20080505
  Transmission Date: 20081010
  Serious: No
  Sender: FDA-Public Use
  Company Number: US-ASTRAZENECA-2008UW01715

PATIENT
  Age: 76 Year
  Sex: Female
  Weight: 95.7 kg

DRUGS (5)
  1. ATACAND HCT [Suspect]
     Indication: HYPERTENSION
     Dosage: 16/12.5 MG QD
     Route: 048
     Dates: start: 20080116
  2. ATACAND HCT [Suspect]
     Dosage: 8/12.5 MG QD
     Route: 048
     Dates: start: 20080324
  3. ATACAND HCT [Suspect]
     Dosage: 4/12.5 MG QD
     Route: 048
     Dates: start: 20080401
  4. PROTONIX [Concomitant]
  5. VITAMINS [Concomitant]

REACTIONS (3)
  - BLOOD PRESSURE FLUCTUATION [None]
  - HEADACHE [None]
  - HYPOTENSION [None]
